FAERS Safety Report 7162410-1 (Version None)
Quarter: 2010Q4

REPORT INFORMATION
  Report Type: 
  Country: None (occurrence: None)
  Receive Date: 20101215
  Receipt Date: 20101206
  Transmission Date: 20110411
  Serious: Yes (Hospitalization, Other)
  Sender: FDA-Public Use
  Company Number: US-JNJFOC-20100900416

PATIENT
  Sex: Male
  Weight: 94.8 kg

DRUGS (1)
  1. LEVAQUIN [Suspect]
     Indication: RESPIRATORY TRACT INFECTION
     Route: 048

REACTIONS (8)
  - DEPRESSION [None]
  - JOINT INJURY [None]
  - MUSCLE ATROPHY [None]
  - NEUROPATHY PERIPHERAL [None]
  - SYNOVIAL CYST [None]
  - TENDON INJURY [None]
  - TENDON RUPTURE [None]
  - TENDONITIS [None]
